FAERS Safety Report 7741946-6 (Version None)
Quarter: 2011Q3

REPORT INFORMATION
  Report Type: 
  Country: None (occurrence: None)
  Receive Date: 20110906
  Receipt Date: 20110825
  Transmission Date: 20111222
  Serious: Yes (Life-Threatening)
  Sender: FDA-Public Use
  Company Number: 2011ST000240

PATIENT
  Age: 41 Year
  Sex: Male

DRUGS (1)
  1. ABELCET [Suspect]
     Indication: PRODUCT USED FOR UNKNOWN INDICATION
     Dosage: ;IV
     Route: 042
     Dates: start: 20110803, end: 20110808

REACTIONS (4)
  - CHILLS [None]
  - PYREXIA [None]
  - RESPIRATORY FAILURE [None]
  - AGITATION [None]
